FAERS Safety Report 6664175-6 (Version None)
Quarter: 2010Q2

REPORT INFORMATION
  Report Type: 
  Country: None (occurrence: None)
  Receive Date: 20100401
  Receipt Date: 20100322
  Transmission Date: 20101027
  Serious: Yes (Other)
  Sender: FDA-Public Use
  Company Number: US-PFIZER INC-2010036818

PATIENT
  Sex: Female
  Weight: 60.771 kg

DRUGS (3)
  1. ZOLOFT [Suspect]
     Indication: DEPRESSION
     Dosage: 50 MG, 1X/DAY
     Route: 048
     Dates: start: 20050101, end: 20060401
  2. PRINIVIL [Concomitant]
     Indication: HYPERTENSION
     Dosage: 40 MG, 1X/DAY
     Route: 048
  3. VITAMINS [Concomitant]
     Dosage: UNK
     Route: 048

REACTIONS (2)
  - MENIERE'S DISEASE [None]
  - TYPE 2 DIABETES MELLITUS [None]
